FAERS Safety Report 17106898 (Version 7)
Quarter: 2021Q2

REPORT INFORMATION
  Report Type: Report from Study
  Country: FR (occurrence: FR)
  Receive Date: 20191203
  Receipt Date: 20210609
  Transmission Date: 20210716
  Serious: Yes (Hospitalization, Other)
  Sender: FDA-Public Use
  Company Number: FR-BRISTOL-MYERS SQUIBB COMPANY-BMS-2019-103468

PATIENT
  Age: 84 Year
  Sex: Female
  Weight: 49 kg

DRUGS (4)
  1. XARELTO [Concomitant]
     Active Substance: RIVAROXABAN
     Indication: PULMONARY EMBOLISM
     Dosage: UNK
     Route: 048
  2. NIVOLUMAB [Suspect]
     Active Substance: NIVOLUMAB
     Indication: HODGKIN^S DISEASE
     Dosage: 240 MILLIGRAM, Q2WK
     Route: 042
     Dates: start: 20190723, end: 20191015
  3. VINBLASTINE SULFATE. [Suspect]
     Active Substance: VINBLASTINE SULFATE
     Indication: HODGKIN^S DISEASE
     Dosage: 8.80 MILLIGRAM
     Route: 042
     Dates: start: 20191015, end: 20191015
  4. PANTOPRAZOLE [Concomitant]
     Active Substance: PANTOPRAZOLE
     Indication: HIATUS HERNIA
     Dosage: 20 MILLIGRAM
     Route: 048

REACTIONS (6)
  - Hypokalaemia [Recovering/Resolving]
  - Hyponatraemia [Recovering/Resolving]
  - Pain [Recovered/Resolved]
  - General physical condition abnormal [Unknown]
  - Human herpesvirus 6 encephalitis [Recovered/Resolved]
  - Confusional state [Recovered/Resolved with Sequelae]

NARRATIVE: CASE EVENT DATE: 20191023
